FAERS Safety Report 6359537-0 (Version None)
Quarter: 2009Q3

REPORT INFORMATION
  Report Type: 
  Country: None (occurrence: None)
  Receive Date: 20090917
  Receipt Date: 20090914
  Transmission Date: 20100115
  Serious: Yes (Death)
  Sender: FDA-Public Use
  Company Number: US-JNJFOC-20090905176

PATIENT
  Age: 5 Decade
  Sex: Female

DRUGS (1)
  1. LEVAQUIN [Suspect]
     Indication: PNEUMONIA
     Route: 065

REACTIONS (1)
  - DEATH [None]
